FAERS Safety Report 23802208 (Version 1)
Quarter: 2024Q2

REPORT INFORMATION
  Report Type: Spontaneous
  Country: CN (occurrence: CN)
  Receive Date: 20240501
  Receipt Date: 20240501
  Transmission Date: 20240716
  Serious: Yes (Other)
  Sender: FDA-Public Use
  Company Number: None

PATIENT
  Age: 72 Year
  Sex: Male
  Weight: 70 kg

DRUGS (1)
  1. IVABRADINE HYDROCHLORIDE [Suspect]
     Active Substance: IVABRADINE HYDROCHLORIDE
     Indication: Sinus tachycardia
     Dosage: 2.5 MG, BID
     Route: 048
     Dates: start: 20240412, end: 20240415

REACTIONS (2)
  - Product use issue [Recovered/Resolved]
  - Sinus bradycardia [Recovering/Resolving]

NARRATIVE: CASE EVENT DATE: 20240412
